FAERS Safety Report 13552120 (Version 1)
Quarter: 2017Q2

REPORT INFORMATION
  Report Type: Report from Study
  Country: None (occurrence: BR)
  Receive Date: 20170516
  Receipt Date: 20170516
  Transmission Date: 20170830
  Serious: Yes (Other)
  Sender: FDA-Public Use
  Company Number: BR-ABBVIE-17K-020-1976349-00

PATIENT
  Age: 38 Year
  Sex: Female
  Weight: 50 kg

DRUGS (5)
  1. CYMBI [Concomitant]
     Indication: DEPRESSION
     Route: 048
     Dates: start: 201606
  2. CYMBI [Concomitant]
     Indication: FIBROMYALGIA
  3. HUMIRA [Suspect]
     Active Substance: ADALIMUMAB
     Route: 058
     Dates: start: 20170401
  4. RIVOTRIL [Concomitant]
     Active Substance: CLONAZEPAM
     Indication: ANXIETY
     Dosage: 5 DROPS IN THE MORNING, 5 DROPS IN THE AFTERNOON AND 15 DROPS AT NIGHT.
     Route: 048
     Dates: start: 201606
  5. HUMIRA [Suspect]
     Active Substance: ADALIMUMAB
     Indication: ANKYLOSING SPONDYLITIS
     Route: 058
     Dates: start: 20150912, end: 2017

REACTIONS (7)
  - Head injury [Unknown]
  - Limb injury [Unknown]
  - Joint range of motion decreased [Not Recovered/Not Resolved]
  - Anxiety [Unknown]
  - Impaired healing [Unknown]
  - Road traffic accident [Recovering/Resolving]
  - Post-traumatic pain [Not Recovered/Not Resolved]

NARRATIVE: CASE EVENT DATE: 2017
